FAERS Safety Report 6155078-4 (Version None)
Quarter: 2009Q2

REPORT INFORMATION
  Report Type: 
  Country: None (occurrence: None)
  Receive Date: 20090410
  Receipt Date: 20090325
  Transmission Date: 20091009
  Serious: Yes (Disabling)
  Sender: FDA-Public Use
  Company Number: 000552

PATIENT
  Sex: Male

DRUGS (1)
  1. NEUPRO [Suspect]
     Dosage: 4 MG QD TRANSDERMAL
     Route: 062

REACTIONS (4)
  - DRUG EFFECT DECREASED [None]
  - IMMOBILE [None]
  - PARKINSON'S DISEASE [None]
  - TREMOR [None]
